FAERS Safety Report 16923592 (Version 2)
Quarter: 2019Q4

REPORT INFORMATION
  Report Type: Spontaneous
  Country: US (occurrence: US)
  Receive Date: 20191016
  Receipt Date: 20191107
  Transmission Date: 20200122
  Serious: Yes (Hospitalization, Other)
  Sender: FDA-Public Use
  Company Number: US-DRREDDYS-USA/USA/19/0115145

PATIENT
  Age: 77 Year
  Sex: Male

DRUGS (1)
  1. ATORVASTATIN [Suspect]
     Active Substance: ATORVASTATIN
     Indication: HYPERLIPIDAEMIA
     Dosage: INCREASED DOSAGE

REACTIONS (5)
  - Myopathy [Recovering/Resolving]
  - Hypercapnia [Recovering/Resolving]
  - Dyspnoea [Recovering/Resolving]
  - Diaphragm muscle weakness [Recovering/Resolving]
  - Atelectasis [Recovering/Resolving]
